FAERS Safety Report 16527793 (Version 1)
Quarter: 2019Q3

REPORT INFORMATION
  Report Type: Spontaneous
  Country: US (occurrence: US)
  Receive Date: 20190703
  Receipt Date: 20190703
  Transmission Date: 20191004
  Serious: Yes (Life-Threatening)
  Sender: FDA-Public Use
  Company Number: US-ALSI-201900295

PATIENT
  Age: 13 Month
  Sex: Male

DRUGS (1)
  1. OXYGEN. [Suspect]
     Active Substance: OXYGEN
     Indication: ANAESTHESIA
     Route: 055
     Dates: start: 20150902, end: 20150902

REACTIONS (3)
  - Accident [Recovered/Resolved with Sequelae]
  - Thermal burn [Recovered/Resolved with Sequelae]
  - Intentional product misuse [Recovered/Resolved with Sequelae]
